FAERS Safety Report 19514501 (Version 1)
Quarter: 2021Q3

REPORT INFORMATION
  Report Type: Spontaneous
  Country: CN (occurrence: CN)
  Receive Date: 20210710
  Receipt Date: 20210710
  Transmission Date: 20211014
  Serious: Yes (Other)
  Sender: FDA-Public Use
  Company Number: CN-ABBVIE-21K-035-3985229-00

PATIENT

DRUGS (1)
  1. IMBRUVICA [Suspect]
     Active Substance: IBRUTINIB
     Indication: CHRONIC LYMPHOCYTIC LEUKAEMIA
     Dosage: MAY?JUN 2021
     Route: 048

REACTIONS (5)
  - Blood creatine phosphokinase increased [Unknown]
  - Electrocardiogram ST segment elevation [Unknown]
  - Myoglobin blood increased [Unknown]
  - Blood immunoglobulin M decreased [Unknown]
  - Haemoglobin decreased [Unknown]
